FAERS Safety Report 5467056-9 (Version None)
Quarter: 2007Q3

REPORT INFORMATION
  Report Type: 
  Country: None (occurrence: None)
  Receive Date: 20070925
  Receipt Date: 20070918
  Transmission Date: 20080115
  Serious: Yes (Disabling, Congenital Anomaly)
  Sender: FDA-Public Use
  Company Number: D0054362A

PATIENT
  Age: 1 Day
  Sex: Male
  Weight: 3.2 kg

DRUGS (1)
  1. TAGONIS [Suspect]
     Indication: OBSESSIVE-COMPULSIVE DISORDER
     Dosage: 40MG PER DAY
     Route: 048
     Dates: start: 20020101

REACTIONS (6)
  - CAESAREAN SECTION [None]
  - CEREBRAL HAEMORRHAGE [None]
  - CEREBRAL INFARCTION [None]
  - COAGULATION DISORDER NEONATAL [None]
  - DRUG EXPOSURE DURING PREGNANCY [None]
  - PARTIAL SEIZURES [None]
